FAERS Safety Report 9263455 (Version 1)
Quarter: 2013Q2

REPORT INFORMATION
  Report Type: Report from Study
  Country: US (occurrence: US)
  Receive Date: 20130430
  Receipt Date: 20130430
  Transmission Date: 20140414
  Serious: No
  Sender: FDA-Public Use
  Company Number: US-ABBOTT-13P-163-1033741-00

PATIENT
  Age: 29 Year
  Sex: Male

DRUGS (1)
  1. CREON [Suspect]
     Indication: PANCREATITIS
     Dosage: 6 TOTAL PER DAY
     Dates: start: 20120410

REACTIONS (6)
  - Influenza like illness [Unknown]
  - Diarrhoea [Unknown]
  - Nausea [Unknown]
  - Pyrexia [Unknown]
  - Sinus headache [Unknown]
  - Pain [Unknown]
